FAERS Safety Report 12492417 (Version 2)
Quarter: 2016Q2

REPORT INFORMATION
  Report Type: Spontaneous
  Country: DE (occurrence: DE)
  Receive Date: 20160623
  Receipt Date: 20160630
  Transmission Date: 20160815
  Serious: Yes (Hospitalization)
  Sender: FDA-Public Use
  Company Number: DE-PFIZER INC-2016312349

PATIENT
  Age: 89 Year
  Sex: Female

DRUGS (6)
  1. VALSARTAN. [Suspect]
     Active Substance: VALSARTAN
     Dosage: UNK, DAILY
     Route: 048
  2. FUROSEMIDE. [Suspect]
     Active Substance: FUROSEMIDE
     Dosage: UNK, DAILY
     Route: 048
  3. DIGOXIN. [Suspect]
     Active Substance: DIGOXIN
     Dosage: UNK, DAILY
     Route: 048
  4. SPIRONOLACTONE. [Suspect]
     Active Substance: SPIRONOLACTONE
     Dosage: UNK, DAILY
     Route: 048
  5. RAMIPRIL. [Suspect]
     Active Substance: RAMIPRIL
     Dosage: UNK, DAILY
     Route: 048
  6. METOPROLOL. [Suspect]
     Active Substance: METOPROLOL
     Dosage: UNK, DAILY
     Route: 048

REACTIONS (1)
  - Dehydration [Unknown]
